FAERS Safety Report 8783785 (Version 1)
Quarter: 2012Q4

REPORT INFORMATION
  Report Type: Report from Study
  Country: US (occurrence: US)
  Receive Date: 20120913
  Receipt Date: 20120913
  Transmission Date: 20130627
  Serious: No
  Sender: FDA-Public Use
  Company Number: US-VERTEX PHARMACEUTICAL INC.-AE-2012-009206

PATIENT
  Age: 61 Year
  Sex: Male

DRUGS (13)
  1. INCIVEK [Suspect]
     Indication: HEPATITIS C
     Route: 048
  2. RIBAVIRIN [Concomitant]
     Indication: HEPATITIS C
  3. PEGASYS [Concomitant]
     Indication: HEPATITIS C
  4. AMBIEN [Concomitant]
  5. GEMFIBROZIL [Concomitant]
  6. NABUMETONE [Concomitant]
  7. FLUOXETINE [Concomitant]
  8. NOVOLOG [Concomitant]
  9. VITAMIN D [Concomitant]
  10. CARBAMAZEPIN ER [Concomitant]
  11. MULTIVITAMIN [Concomitant]
  12. ASPIR-81 EC [Concomitant]
  13. GINKOBA [Concomitant]

REACTIONS (1)
  - Rash [Unknown]
